FAERS Safety Report 7333254-2 (Version None)
Quarter: 2011Q1

REPORT INFORMATION
  Report Type: 
  Country: None (occurrence: None)
  Receive Date: 20110304
  Receipt Date: 20110223
  Transmission Date: 20110831
  Serious: Yes (Other)
  Sender: FDA-Public Use
  Company Number: US-ASTRAZENECA-2010SE26523

PATIENT
  Age: 70 Year
  Sex: Male
  Weight: 74.4 kg

DRUGS (4)
  1. NEXIUM [Suspect]
     Indication: BARRETT'S OESOPHAGUS
     Route: 048
  2. SEROQUEL [Suspect]
     Route: 048
     Dates: start: 20100101
  3. CRESTOR [Suspect]
     Route: 048
  4. NEXIUM [Suspect]
     Indication: GASTROOESOPHAGEAL REFLUX DISEASE
     Route: 048

REACTIONS (4)
  - NO ADVERSE EVENT [None]
  - LUNG NEOPLASM MALIGNANT [None]
  - CHEMOTHERAPY [None]
  - THERAPEUTIC RESPONSE UNEXPECTED [None]
